FAERS Safety Report 24570222 (Version 5)
Quarter: 2025Q1

REPORT INFORMATION
  Report Type: Spontaneous
  Country: US (occurrence: US)
  Receive Date: 20241031
  Receipt Date: 20250102
  Transmission Date: 20250409
  Serious: Yes (Other)
  Sender: SUNOVION
  Company Number: US-SMPA-2024SPA004516

PATIENT

DRUGS (2)
  1. ORGOVYX [Suspect]
     Active Substance: RELUGOLIX
     Indication: Prostate cancer
     Dosage: 360 MG, SINGLE
     Route: 048
     Dates: start: 20241028, end: 20241028
  2. ORGOVYX [Suspect]
     Active Substance: RELUGOLIX
     Dosage: 120 MG, QD
     Route: 048
     Dates: start: 20241029

REACTIONS (5)
  - Deep vein thrombosis [Unknown]
  - Chest discomfort [Unknown]
  - Blood triglycerides decreased [Unknown]
  - Feeling hot [Unknown]
  - Hot flush [Unknown]

NARRATIVE: CASE EVENT DATE: 20241001
